FAERS Safety Report 4864396-9 (Version None)
Quarter: 2005Q4

REPORT INFORMATION
  Report Type: 
  Country: None (occurrence: None)
  Receive Date: 20051222
  Receipt Date: 20051213
  Transmission Date: 20060501
  Serious: Yes (Hospitalization)
  Sender: FDA-Public Use
  Company Number: GB-BRISTOL-MYERS SQUIBB COMPANY-13212667

PATIENT
  Age: 54 Year
  Sex: Female
  Weight: 49 kg

DRUGS (6)
  1. CISPLATIN [Suspect]
     Indication: CERVIX CARCINOMA
     Route: 042
     Dates: start: 20051011, end: 20051019
  2. DEXAMETHASONE [Concomitant]
     Route: 042
  3. GRANISETRON [Concomitant]
     Route: 042
  4. TEMAZEPAM [Concomitant]
     Route: 048
  5. ACONITE [Concomitant]
  6. ARNICA EXTRACT [Concomitant]

REACTIONS (1)
  - HEPATITIS ACUTE [None]
